FAERS Safety Report 12535477 (Version 1)
Quarter: 2016Q3

REPORT INFORMATION
  Report Type: Spontaneous
  Country: US (occurrence: None)
  Receive Date: 20160706
  Receipt Date: 20160706
  Transmission Date: 20161109
  Serious: No
  Sender: FDA-Public Use
  Company Number: None

PATIENT
  Age: 46 Year
  Sex: Male
  Weight: 61.69 kg

DRUGS (3)
  1. VEGGIE PROTEIN DRINK [Concomitant]
  2. HYDROCODONE/ACETAMINOPHEN 325MG PAR PHARMACEUTICALS [Suspect]
     Active Substance: ACETAMINOPHEN\HYDROCODONE
     Indication: GINGIVAL OPERATION
     Route: 048
     Dates: start: 20160629, end: 20160704
  3. HEB MULTIVITAMIN [Concomitant]

REACTIONS (3)
  - Hallucination, visual [None]
  - Visual impairment [None]
  - Thinking abnormal [None]

NARRATIVE: CASE EVENT DATE: 20160704
